FAERS Safety Report 12010680 (Version 2)
Quarter: 2016Q1

REPORT INFORMATION
  Report Type: Spontaneous
  Country: DE (occurrence: DE)
  Receive Date: 20160205
  Receipt Date: 20160302
  Transmission Date: 20160526
  Serious: Yes (Other)
  Sender: FDA-Public Use
  Company Number: DE-PFIZER INC-2016050568

PATIENT
  Age: 3 Week
  Sex: Female
  Weight: 3.4 kg

DRUGS (7)
  1. FOLIO JODFREI [Concomitant]
     Indication: PROPHYLAXIS OF NEURAL TUBE DEFECT
     Dosage: 0.4 MG, DAILY 1 TRIMESTER, 0-12 GW
     Route: 064
  2. GAVISCON /01405501/ [Concomitant]
     Active Substance: SODIUM ALGINATE\SODIUM BICARBONATE
     Indication: GASTROOESOPHAGEAL REFLUX DISEASE
     Dosage: UNK UNK, AS NEEDED (1 TO THREE TIMES PER DAY IF REQUIRED)
     Route: 064
     Dates: start: 20121212, end: 20130922
  3. PANTOPRAZOLE [Suspect]
     Active Substance: PANTOPRAZOLE SODIUM
     Indication: GASTROOESOPHAGEAL REFLUX DISEASE
     Dosage: 60 MG, DAILY ((AFTER WEEK 9+2 FOR A FEW DAYS)
     Route: 064
     Dates: start: 20130216
  4. PANTOPRAZOLE [Suspect]
     Active Substance: PANTOPRAZOLE SODIUM
     Dosage: 40 MG, DAILY (9.3-40.4 GW, 1 TRIMESTER UNTIL DELIVERY)
     Route: 064
     Dates: end: 20130922
  5. ESOMEPRAZOLE [Suspect]
     Active Substance: ESOMEPRAZOLE
     Indication: GASTROOESOPHAGEAL REFLUX DISEASE
     Dosage: 80 MG, DAILY (UNTIL GW 6)
     Route: 064
     Dates: start: 20121212
  6. ULCOGANT [Concomitant]
     Active Substance: SUCRALFATE
     Indication: GASTROOESOPHAGEAL REFLUX DISEASE
     Dosage: 3 G, DAILY (FOR 3 DAYS GW 8 TO 9)
     Route: 064
     Dates: start: 20130208, end: 20130213
  7. ESOMEPRAZOLE [Suspect]
     Active Substance: ESOMEPRAZOLE
     Dosage: 40 MG, DAILY (GW 6 UNTIL GW 9+2)
     Route: 064
     Dates: end: 20130215

REACTIONS (2)
  - Maternal exposure timing unspecified [Unknown]
  - Vitiligo [Not Recovered/Not Resolved]
